FAERS Safety Report 12779482 (Version 1)
Quarter: 2016Q3

REPORT INFORMATION
  Report Type: Spontaneous
  Country: US (occurrence: US)
  Receive Date: 20160923
  Receipt Date: 20160923
  Transmission Date: 20161109
  Serious: Yes (Other)
  Sender: FDA-Public Use
  Company Number: None

PATIENT
  Age: 48 Year
  Sex: Male
  Weight: 99 kg

DRUGS (6)
  1. C-PAP MACHINE [Concomitant]
     Active Substance: DEVICE
  2. PROVILLUS [Suspect]
     Active Substance: MINOXIDIL
     Indication: HAIR GROWTH ABNORMAL
     Route: 061
     Dates: start: 20160401, end: 20160724
  3. DAILY MULTIVITAMIN [Concomitant]
     Active Substance: VITAMINS
  4. NIACIN. [Concomitant]
     Active Substance: NIACIN
  5. GARLIC TABLETS [Concomitant]
     Active Substance: GARLIC
  6. FISH OIL [Concomitant]
     Active Substance: FISH OIL

REACTIONS (2)
  - Libido decreased [None]
  - Erectile dysfunction [None]

NARRATIVE: CASE EVENT DATE: 20160610
